FAERS Safety Report 7028243-1 (Version None)
Quarter: 2010Q3

REPORT INFORMATION
  Report Type: 
  Country: None (occurrence: None)
  Receive Date: 20100930
  Receipt Date: 20100922
  Transmission Date: 20110219
  Serious: Yes (Hospitalization)
  Sender: FDA-Public Use
  Company Number: 019108

PATIENT
  Sex: Male

DRUGS (12)
  1. KEPPRA [Suspect]
     Dosage: (1000 MG BID ORAL)
     Route: 048
  2. HYPNOVEL /00634103/ (HYPNOVEL) [Suspect]
     Dosage: (INTRAVENOUS (NOT OTHERWISE SPECIFIED)
     Route: 042
     Dates: start: 20100707, end: 20100707
  3. PERFALAN (PERFALGAN) (NOT SPECIFIED) [Suspect]
     Dosage: (INTRAVENOUS (NOT OTHERWISE SPECIFIED)
     Route: 042
     Dates: start: 20100707, end: 20100707
  4. SPASFON /00765801/ (SPASFON) [Suspect]
     Dates: start: 20100707, end: 20100707
  5. PRETERAX (PRETERAX) (NOT SPECIFIED) [Suspect]
     Dosage: (1 TABLET ORAL)
     Route: 048
     Dates: start: 20090101
  6. TRILEPTAL [Suspect]
     Dosage: (600 MG BID ORAL)
     Route: 048
  7. MOPRAL /00661201/ (MOPRAL) [Suspect]
     Dosage: (20 MG ORAL)
     Route: 048
  8. MIANSERINE HCL PCH (MIANSERINE) (NOT SPECIFIED) [Suspect]
     Dosage: (30 MG ORAL)
     Route: 048
  9. TAMSULOSINE HCL A (TAMSULOSINE) (NOT SPECIFIED) [Suspect]
     Dosage: (0.4 MG ORAL)
     Route: 048
  10. AMISULPRIDE (AMISULPIRIDE) [Suspect]
     Dosage: (100 MG ORAL)
     Route: 048
  11. SERTRALINE HYDROCHLORIDE [Suspect]
     Dosage: (50 MG ORAL)
     Route: 048
  12. EQUANIL [Suspect]
     Dosage: (400 MG ORAL)
     Route: 048

REACTIONS (7)
  - EYELID OEDEMA [None]
  - FACE OEDEMA [None]
  - HYPOTENSION [None]
  - LIP SWELLING [None]
  - MALAISE [None]
  - PALATAL OEDEMA [None]
  - TACHYCARDIA [None]
